FAERS Safety Report 12623247 (Version 6)
Quarter: 2017Q1

REPORT INFORMATION
  Report Type: Report from Study
  Country: US (occurrence: US)
  Receive Date: 20160804
  Receipt Date: 20170214
  Transmission Date: 20170428
  Serious: Yes (Hospitalization)
  Sender: FDA-Public Use
  Company Number: US-TAKEDA-2016MPI006915

PATIENT
  Sex: Female

DRUGS (15)
  1. FENTANYL. [Concomitant]
     Active Substance: FENTANYL
     Dosage: UNK
     Route: 065
  2. IXAZOMIB [Suspect]
     Active Substance: IXAZOMIB
     Dosage: 4 MG, UNK
     Route: 048
     Dates: start: 201608, end: 201610
  3. AMLODIPINE BESYLATE. [Concomitant]
     Active Substance: AMLODIPINE BESYLATE
     Dosage: UNK
     Route: 065
  4. GABAPENTIN. [Concomitant]
     Active Substance: GABAPENTIN
     Dosage: UNK
     Route: 065
  5. MULTIVITAMIN                       /07504101/ [Concomitant]
     Active Substance: VITAMINS
     Dosage: UNK
     Route: 065
  6. ASPIRIN                            /00002701/ [Concomitant]
     Active Substance: ASPIRIN
     Dosage: UNK
     Route: 065
  7. POMALYST [Suspect]
     Active Substance: POMALIDOMIDE
     Indication: PRODUCT USED FOR UNKNOWN INDICATION
     Dosage: 4 MG, UNK
     Route: 065
  8. POTASSIUM CHLORIDE. [Concomitant]
     Active Substance: POTASSIUM CHLORIDE
     Dosage: UNK
     Route: 065
  9. ACYCLOVIR                          /00587301/ [Concomitant]
     Active Substance: ACYCLOVIR
     Dosage: UNK
     Route: 065
  10. IXAZOMIB [Suspect]
     Active Substance: IXAZOMIB
     Indication: PLASMA CELL MYELOMA
     Dosage: 3 MG, 1/WEEK
     Route: 048
     Dates: start: 20160714
  11. FOLIC ACID. [Concomitant]
     Active Substance: FOLIC ACID
     Dosage: UNK
     Route: 065
  12. DILAUDID [Concomitant]
     Active Substance: HYDROMORPHONE HYDROCHLORIDE
     Dosage: UNK
     Route: 065
  13. DEXAMETHASONE. [Suspect]
     Active Substance: DEXAMETHASONE
     Indication: PRODUCT USED FOR UNKNOWN INDICATION
     Dosage: UNK
     Route: 065
  14. LISINOPRIL. [Concomitant]
     Active Substance: LISINOPRIL
     Dosage: UNK
     Route: 065
  15. BACTRIM [Concomitant]
     Active Substance: SULFAMETHOXAZOLE\TRIMETHOPRIM
     Dosage: UNK
     Route: 065

REACTIONS (7)
  - Peripheral swelling [Unknown]
  - Hospitalisation [Unknown]
  - Off label use [Unknown]
  - Joint swelling [Unknown]
  - Fatigue [Unknown]
  - Alopecia [Unknown]
  - Pruritus [Unknown]
